FAERS Safety Report 9461338 (Version 6)
Quarter: 2013Q3

REPORT INFORMATION
  Report Type: Spontaneous
  Country: US (occurrence: US)
  Receive Date: 20130816
  Receipt Date: 20130906
  Transmission Date: 20140515
  Serious: Yes (Death, Hospitalization, Other)
  Sender: FDA-Public Use
  Company Number: US-JNJFOC-20130804668

PATIENT
  Age: 81 Year
  Sex: Male

DRUGS (2)
  1. XARELTO [Suspect]
     Indication: THROMBOSIS PROPHYLAXIS
     Route: 048
     Dates: start: 20130801
  2. XARELTO [Suspect]
     Indication: HIP ARTHROPLASTY
     Route: 048
     Dates: start: 20130801

REACTIONS (7)
  - Death [Fatal]
  - Small intestinal obstruction [Unknown]
  - Peritonitis [Unknown]
  - Septic shock [Unknown]
  - Infection [Unknown]
  - Abdominal symptom [Unknown]
  - Respiratory distress [Unknown]
